FAERS Safety Report 7407839-9 (Version None)
Quarter: 2011Q2

REPORT INFORMATION
  Report Type: 
  Country: None (occurrence: None)
  Receive Date: 20110412
  Receipt Date: 20110404
  Transmission Date: 20111010
  Serious: Yes (Disabling)
  Sender: FDA-Public Use
  Company Number: GB-ASTELLAS-2011EU001177

PATIENT
  Age: 66 Year
  Sex: Male

DRUGS (5)
  1. SENNA [Concomitant]
     Dosage: UNK
     Route: 065
  2. MACROGOL [Concomitant]
     Dosage: UNK
     Route: 065
  3. ROPINIROLE [Concomitant]
     Dosage: UNK
     Route: 065
  4. CINAMET [Concomitant]
     Dosage: UNK
     Route: 065
  5. VESICARE [Suspect]
     Indication: HYPERTONIC BLADDER
     Dosage: 5 MG, UID/QD
     Route: 048
     Dates: start: 20101130, end: 20101230

REACTIONS (2)
  - PARKINSON'S DISEASE [None]
  - DISORIENTATION [None]
